FAERS Safety Report 8055232-0 (Version None)
Quarter: 2011Q4

REPORT INFORMATION
  Report Type: 
  Country: None (occurrence: None)
  Receive Date: 20111219
  Receipt Date: 20110118
  Transmission Date: 20120403
  Serious: Yes (Other)
  Sender: FDA-Public Use
  Company Number: WAES 1101USA01822

PATIENT
  Age: 51 Year
  Sex: Female

DRUGS (5)
  1. SYNTHROID [Concomitant]
  2. METFORMIN HYDROCHLORIDE [Concomitant]
  3. JANUVIA [Suspect]
     Indication: GLYCOSYLATED HAEMOGLOBIN INCREASED
     Dosage: 100 MG/DAILY/PO
     Route: 048
     Dates: start: 20100401, end: 20100601
  4. XANAX [Concomitant]
  5. ENALAPRIL MALEATE [Concomitant]

REACTIONS (6)
  - ABDOMINAL PAIN [None]
  - MALAISE [None]
  - ADVERSE EVENT [None]
  - PALLOR [None]
  - ANXIETY [None]
  - PANCREATITIS [None]
